FAERS Safety Report 11162323 (Version 1)
Quarter: 2015Q2

REPORT INFORMATION
  Report Type: Spontaneous
  Country: US (occurrence: None)
  Receive Date: 20150603
  Receipt Date: 20150603
  Transmission Date: 20150821
  Serious: Yes (Life-Threatening)
  Sender: FDA-Public Use
  Company Number: None

PATIENT
  Age: 54 Year
  Sex: Male
  Weight: 66.5 kg

DRUGS (15)
  1. LOVENOX [Concomitant]
     Active Substance: ENOXAPARIN SODIUM
  2. LISPRO [Concomitant]
     Active Substance: INSULIN LISPRO
  3. PREDNISONE. [Concomitant]
     Active Substance: PREDNISONE
  4. DIPHENHYDRAMINE [Concomitant]
     Active Substance: DIPHENHYDRAMINE
  5. LANTUS [Concomitant]
     Active Substance: INSULIN GLARGINE
  6. GLOBULIN [Concomitant]
     Active Substance: HUMAN IMMUNOGLOBULIN G
  7. PEPCID [Concomitant]
     Active Substance: FAMOTIDINE
  8. BISACODYL. [Concomitant]
     Active Substance: BISACODYL
  9. LEVAQUIN [Concomitant]
     Active Substance: LEVOFLOXACIN
  10. RITUXAN [Suspect]
     Active Substance: RITUXIMAB
     Indication: DERMATOMYOSITIS
     Route: 042
     Dates: start: 20150527, end: 20150527
  11. ACETAMIONOPHEN [Concomitant]
     Active Substance: ACETAMINOPHEN
  12. DOCUSATE [Concomitant]
     Active Substance: DOCUSATE
  13. SENNA [Concomitant]
     Active Substance: SENNA LEAF\SENNOSIDES\SENNOSIDES A AND B
  14. MIRALZ [Concomitant]
  15. ADVAIR HFA [Concomitant]
     Active Substance: FLUTICASONE PROPIONATE\SALMETEROL XINAFOATE

REACTIONS (3)
  - Dyspnoea [None]
  - Poor venous access [None]
  - Cardio-respiratory arrest [None]

NARRATIVE: CASE EVENT DATE: 20150527
